FAERS Safety Report 24181637 (Version 1)
Quarter: 2024Q3

REPORT INFORMATION
  Report Type: Spontaneous
  Country: US (occurrence: US)
  Receive Date: 20240807
  Receipt Date: 20240807
  Transmission Date: 20241017
  Serious: Yes (Other)
  Sender: REGENERON
  Company Number: US-REGENERON PHARMACEUTICALS, INC.-2024-106310

PATIENT
  Sex: Female

DRUGS (5)
  1. EYLEA HD [Suspect]
     Active Substance: AFLIBERCEPT
     Indication: Neovascular age-related macular degeneration
     Dosage: 8 MG, EVERY 4 WEEKS/MONTHLY (FORMULATION: HD VIAL SAMPLE)
     Dates: start: 20240320, end: 20240320
  2. EYLEA HD [Suspect]
     Active Substance: AFLIBERCEPT
     Dosage: 8 MG, EVERY 4 WEEKS/MONTHLY (FORMULATION: HD VIAL SAMPLE)
     Dates: start: 20240417, end: 20240417
  3. EYLEA HD [Suspect]
     Active Substance: AFLIBERCEPT
     Dosage: 8 MG, EVERY 4 WEEKS/MONTHLY (FORMULATION: HD VIAL SAMPLE)
     Dates: start: 20240515, end: 20240515
  4. EYLEA HD [Suspect]
     Active Substance: AFLIBERCEPT
     Dosage: 8 MG, EVERY 4 WEEKS/MONTHLY (FORMULATION: HD VIAL SAMPLE)
     Dates: start: 20240710, end: 20240710
  5. VABYSMO [Concomitant]
     Active Substance: FARICIMAB\FARICIMAB-SVOA
     Indication: Neovascular age-related macular degeneration
     Dosage: UNK
     Dates: start: 20240612, end: 20240612

REACTIONS (2)
  - Macular degeneration [Not Recovered/Not Resolved]
  - Visual impairment [Unknown]

NARRATIVE: CASE EVENT DATE: 20240101
